FAERS Safety Report 7463307-X (Version None)
Quarter: 2011Q2

REPORT INFORMATION
  Report Type: 
  Country: None (occurrence: None)
  Receive Date: 20110506
  Receipt Date: 20110318
  Transmission Date: 20111010
  Serious: Yes (Hospitalization)
  Sender: FDA-Public Use
  Company Number: FR-PFIZER INC-2011059677

PATIENT
  Age: 65 Year
  Sex: Female
  Weight: 60 kg

DRUGS (10)
  1. ACETAMINOPHEN [Suspect]
     Dosage: 1 G, 6X A DAY
     Route: 048
     Dates: start: 20110119, end: 20110123
  2. CORDARONE [Suspect]
     Dosage: 400 MG, 1X/DAY
     Route: 048
     Dates: start: 20110101, end: 20110125
  3. CLOPIDOGREL [Concomitant]
     Dosage: 75 MG, 1X/DAY
  4. KARDEGIC [Concomitant]
     Dosage: 75 MG, 1X/DAY
  5. TIORFAN [Concomitant]
     Dosage: 1 DF, 3X/DAY
     Dates: start: 20110119, end: 20110121
  6. PRIMPERAN TAB [Concomitant]
     Dosage: 1 DF, 3X/DAY
     Dates: start: 20110119, end: 20110121
  7. ATORVASTATIN CALCIUM [Suspect]
     Dosage: 80 MG, 1X/DAY
     Route: 048
     Dates: start: 20110112, end: 20110125
  8. NEXIUM [Concomitant]
     Dosage: 1 DF, 1X/DAY
  9. TRIATEC [Concomitant]
     Dosage: 2.5 MG, 1X/DAY
  10. SYMBICORT [Concomitant]

REACTIONS (3)
  - CYTOLYTIC HEPATITIS [None]
  - HYPOCHOLESTEROLAEMIA [None]
  - CHOLESTASIS [None]
